FAERS Safety Report 19184408 (Version 4)
Quarter: 2022Q1

REPORT INFORMATION
  Report Type: Spontaneous
  Country: JP (occurrence: JP)
  Receive Date: 20210427
  Receipt Date: 20220218
  Transmission Date: 20220423
  Serious: Yes (Other)
  Sender: FDA-Public Use
  Company Number: JP-GLAXOSMITHKLINE-JP2021JPN089214

PATIENT
  Age: 42 Year
  Sex: Female
  Weight: 47 kg

DRUGS (6)
  1. BENLYSTA [Suspect]
     Active Substance: BELIMUMAB
     Indication: Systemic lupus erythematosus
     Dosage: 200 MG, WE
     Route: 058
     Dates: start: 20200911
  2. PREDNISOLONE [Concomitant]
     Active Substance: PREDNISOLONE
     Indication: Systemic lupus erythematosus
     Dosage: 6 MG, 1D
     Route: 048
  3. OMEPRAL TABLETS [Concomitant]
     Indication: Gastrooesophageal reflux disease
     Dosage: 20 MG, 1D
     Route: 048
  4. NORVASC TABLETS [Concomitant]
     Indication: Hypertension
     Dosage: 5 MG, 1D
     Route: 048
  5. CANDESARTAN CILEXETIL [Concomitant]
     Active Substance: CANDESARTAN CILEXETIL
     Indication: Hypertension
     Dosage: 4 MG, 1D
     Route: 048
  6. MUCOSTA TABLETS [Concomitant]
     Indication: Gastritis
     Dosage: 100 MG, 1D
     Route: 048

REACTIONS (1)
  - Renal cell carcinoma stage I [Recovered/Resolved]

NARRATIVE: CASE EVENT DATE: 20210416
